FAERS Safety Report 25482920 (Version 1)
Quarter: 2025Q2

REPORT INFORMATION
  Report Type: Spontaneous
  Country: IT (occurrence: IT)
  Receive Date: 20250626
  Receipt Date: 20250626
  Transmission Date: 20250717
  Serious: Yes (Life-Threatening, Hospitalization, Other)
  Sender: STRIDES
  Company Number: IT-STRIDES ARCOLAB LIMITED-2025SP007691

PATIENT
  Age: 51 Year
  Sex: Male

DRUGS (1)
  1. DISULFIRAM [Interacting]
     Active Substance: DISULFIRAM
     Indication: Alcoholism
     Route: 065

REACTIONS (4)
  - Cardiogenic shock [Recovered/Resolved]
  - Mitral valve incompetence [Recovering/Resolving]
  - Drug interaction [Unknown]
  - Alcohol interaction [Unknown]
